FAERS Safety Report 5730948-7 (Version None)
Quarter: 2008Q2

REPORT INFORMATION
  Report Type: 
  Country: None (occurrence: None)
  Receive Date: 20080507
  Receipt Date: 20080429
  Transmission Date: 20081010
  Serious: Yes (Hospitalization)
  Sender: FDA-Public Use
  Company Number: US-GENENTECH-232380

PATIENT
  Sex: Female
  Weight: 81.179 kg

DRUGS (12)
  1. OMALIZUMAB [Suspect]
     Indication: ASTHMA
     Dosage: 150 MG, Q4W
     Route: 058
     Dates: start: 20030818
  2. OMALIZUMAB [Suspect]
     Dosage: 300 MG, Q4W
     Route: 065
     Dates: start: 20071217
  3. ASMANEX TWISTHALER [Concomitant]
     Indication: ASTHMA
     Dosage: UNK, QD
  4. FORADIL [Concomitant]
     Indication: ASTHMA
     Dosage: UNK, BID
  5. SINGULAIR [Concomitant]
     Indication: ASTHMA
     Dosage: 10 MG, QD
  6. THEOPHYLLINE [Concomitant]
     Indication: ASTHMA
     Dosage: 200 MG, BID
  7. ZYRTEC [Concomitant]
     Indication: HYPERSENSITIVITY
     Dosage: 10 MG, QD
  8. QVAR 40 [Concomitant]
     Indication: ASTHMA
     Dosage: 80 UNK, BID
  9. XOPENEX [Concomitant]
     Indication: ASTHMA
  10. VITAMIN TAB [Concomitant]
     Indication: DRUG USE FOR UNKNOWN INDICATION
  11. PROTONIX [Concomitant]
     Indication: GASTROOESOPHAGEAL REFLUX DISEASE
  12. ALBUTEROL [Concomitant]
     Indication: DRUG USE FOR UNKNOWN INDICATION
     Dosage: UNK, PRN

REACTIONS (3)
  - CAESAREAN SECTION [None]
  - DRUG EXPOSURE DURING PREGNANCY [None]
  - FOETAL DISTRESS SYNDROME [None]
